FAERS Safety Report 18959093 (Version 1)
Quarter: 2021Q1

REPORT INFORMATION
  Report Type: Spontaneous
  Country: US (occurrence: US)
  Receive Date: 20210302
  Receipt Date: 20210302
  Transmission Date: 20210420
  Serious: Yes (Hospitalization, Other)
  Sender: FDA-Public Use
  Company Number: US-ALVOGEN-2021-ALVOGEN-116621

PATIENT
  Age: 62 Year
  Sex: Female

DRUGS (1)
  1. LEVOTHYROXINE. [Suspect]
     Active Substance: LEVOTHYROXINE
     Indication: HYPOTHYROIDISM
     Dosage: DOUBLE THE DOSE FOR THE LAST THREE WEEKS

REACTIONS (8)
  - Acute myocardial infarction [Recovered/Resolved]
  - Overdose [Unknown]
  - Product dose omission issue [Unknown]
  - Weight decreased [Unknown]
  - Hyperthyroidism [Recovered/Resolved]
  - Ejection fraction decreased [Recovered/Resolved]
  - Tachycardia [Recovered/Resolved]
  - Diarrhoea [Unknown]
